FAERS Safety Report 8169070-1 (Version None)
Quarter: 2012Q1

REPORT INFORMATION
  Report Type: 
  Country: None (occurrence: None)
  Receive Date: 20120227
  Receipt Date: 20120217
  Transmission Date: 20120608
  Serious: Yes (Hospitalization, Other)
  Sender: FDA-Public Use
  Company Number: US-ABBOTT-12P-163-0905815-00

PATIENT
  Sex: Female

DRUGS (3)
  1. FOSAMAX [Concomitant]
     Indication: BONE DISORDER
  2. HUMIRA [Suspect]
     Indication: RHEUMATOID ARTHRITIS
     Route: 058
     Dates: start: 20070101, end: 20081201
  3. LASIX [Concomitant]
     Indication: PRODUCT USED FOR UNKNOWN INDICATION

REACTIONS (3)
  - MUSCLE ATROPHY [None]
  - COMA [None]
  - BREAST CANCER STAGE III [None]
